FAERS Safety Report 14452638 (Version 2)
Quarter: 2018Q3

REPORT INFORMATION
  Report Type: Spontaneous
  Country: DE (occurrence: DE)
  Receive Date: 20180129
  Receipt Date: 20180718
  Transmission Date: 20181010
  Serious: Yes (Death, Life-Threatening)
  Sender: FDA-Public Use
  Company Number: PHHY2015DE177552

PATIENT
  Age: 49 Year
  Sex: Male
  Weight: 110 kg

DRUGS (13)
  1. RAMIPRIL. [Concomitant]
     Active Substance: RAMIPRIL
     Indication: HYPERTENSION
     Dosage: 5 MG, QW
     Route: 048
     Dates: start: 20141114, end: 20141214
  2. AVASTIN [Suspect]
     Active Substance: BEVACIZUMAB
     Indication: COLORECTAL CANCER METASTATIC
     Dosage: 550 MG, BIW
     Route: 042
     Dates: start: 20141118
  3. AVASTIN [Suspect]
     Active Substance: BEVACIZUMAB
     Dosage: 550 MG, BIW
     Route: 042
     Dates: start: 20141202
  4. 5?FLUOROURACIL [Concomitant]
     Active Substance: FLUOROURACIL
     Dosage: 6000 MG, BIW
     Route: 042
     Dates: start: 20141202, end: 20141204
  5. DEXAMETHASONE. [Concomitant]
     Active Substance: DEXAMETHASONE
     Indication: PROPHYLAXIS OF NAUSEA AND VOMITING
     Dosage: 6 MG, QW
     Route: 048
     Dates: start: 20141114, end: 20141118
  6. ZOLPIDEM [Concomitant]
     Active Substance: ZOLPIDEM\ZOLPIDEM TARTRATE
     Indication: SLEEP DISORDER
     Dosage: UNK
     Route: 048
  7. LOPERAMIDE [Concomitant]
     Active Substance: LOPERAMIDE
     Indication: PRODUCT USED FOR UNKNOWN INDICATION
     Dosage: UNK
     Route: 048
  8. OXALIPLATIN. [Suspect]
     Active Substance: OXALIPLATIN
     Indication: COLORECTAL CANCER
     Dosage: 170 MG, BIW
     Route: 042
     Dates: start: 20141118, end: 20141202
  9. FOLINIC ACID [Concomitant]
     Active Substance: LEUCOVORIN
     Indication: COLORECTAL CANCER
     Dosage: 1000 MG, BIW
     Route: 042
     Dates: start: 20141118, end: 20141202
  10. 5?FLUOROURACIL [Concomitant]
     Active Substance: FLUOROURACIL
     Indication: COLORECTAL CANCER
     Dosage: 6000 MG, BIW
     Route: 042
     Dates: start: 20141118, end: 20141120
  11. DEXAMETHASONE. [Concomitant]
     Active Substance: DEXAMETHASONE
     Dosage: 8 MG, QW
     Route: 048
     Dates: start: 20141118, end: 20141214
  12. GUTTALAX [Concomitant]
     Indication: CONSTIPATION
     Route: 048
  13. L?THYROXINE [Concomitant]
     Active Substance: LEVOTHYROXINE
     Indication: HYPOTHYROIDISM
     Dosage: 75 UG, QW
     Route: 048
     Dates: start: 20141114, end: 20141214

REACTIONS (7)
  - Acute hepatic failure [Fatal]
  - Renal failure [Fatal]
  - Constipation [Recovered/Resolved]
  - Jaundice [Recovered/Resolved]
  - Sleep disorder [Unknown]
  - Jaundice [Not Recovered/Not Resolved]
  - Dry mouth [Recovered/Resolved]

NARRATIVE: CASE EVENT DATE: 20141118
